FAERS Safety Report 8459612-0 (Version None)
Quarter: 2012Q2

REPORT INFORMATION
  Report Type: 
  Country: None (occurrence: None)
  Receive Date: 20120622
  Receipt Date: 20120620
  Transmission Date: 20120825
  Serious: Yes (Other)
  Sender: FDA-Public Use
  Company Number: US-GLAXOSMITHKLINE-A0974795A

PATIENT
  Age: 68 Year
  Sex: Female

DRUGS (9)
  1. VENTOLIN [Suspect]
     Indication: ASTHMA
     Dosage: 2PUFF AS REQUIRED
     Route: 055
  2. ASMACORT [Concomitant]
  3. DILTIAZEM HYDROCHOLORIDE [Concomitant]
  4. PROTONIX [Concomitant]
  5. HYDROCHLOROTHIAZIDE [Concomitant]
  6. LEVEMIR [Concomitant]
  7. ZETIA [Concomitant]
  8. PRAVASTATIN [Concomitant]
  9. POTASSIUM ACETATE [Concomitant]

REACTIONS (3)
  - PRODUCT QUALITY ISSUE [None]
  - DRUG INEFFECTIVE [None]
  - ASTHMA [None]
